FAERS Safety Report 5706789-3 (Version None)
Quarter: 2008Q2

REPORT INFORMATION
  Report Type: 
  Country: None (occurrence: None)
  Receive Date: 20080415
  Receipt Date: 20080415
  Transmission Date: 20081010
  Serious: No
  Sender: FDA-Public Use
  Company Number: None

PATIENT
  Age: 48 Year
  Sex: Female
  Weight: 65.7716 kg

DRUGS (1)
  1. CARBIDOPA + LEVODOPA [Suspect]
     Indication: DYSTONIA
     Dosage: 1 PILL 3 TIMES DAILY PO
     Route: 048
     Dates: start: 20080212, end: 20080414

REACTIONS (5)
  - DISEASE RECURRENCE [None]
  - DRUG INEFFECTIVE [None]
  - MUSCLE CONTRACTIONS INVOLUNTARY [None]
  - PHARMACEUTICAL PRODUCT COMPLAINT [None]
  - TREMOR [None]
